FAERS Safety Report 12168794 (Version 1)
Quarter: 2016Q1

REPORT INFORMATION
  Report Type: Spontaneous
  Country: IT (occurrence: IT)
  Receive Date: 20160310
  Receipt Date: 20160310
  Transmission Date: 20160526
  Serious: Yes (Hospitalization, Other)
  Sender: FDA-Public Use
  Company Number: IT-GILEAD-2016-0202338

PATIENT
  Age: 59 Year
  Sex: Male

DRUGS (2)
  1. ZYDELIG [Suspect]
     Active Substance: IDELALISIB
     Indication: CHRONIC LYMPHOCYTIC LEUKAEMIA
     Dosage: 150 MG, QD
     Route: 048
     Dates: start: 20160112, end: 20160220
  2. MABTHERA [Concomitant]
     Active Substance: RITUXIMAB
     Dosage: 375 UG/KG, UNK
     Route: 042

REACTIONS (4)
  - Off label use [Recovered/Resolved]
  - Sepsis [Recovering/Resolving]
  - Atrial fibrillation [Recovering/Resolving]
  - Neutropenia [Recovering/Resolving]

NARRATIVE: CASE EVENT DATE: 20160112
